FAERS Safety Report 14962400 (Version 2)
Quarter: 2018Q2

REPORT INFORMATION
  Report Type: Report from Study
  Country: SE (occurrence: SE)
  Receive Date: 20180601
  Receipt Date: 20180619
  Transmission Date: 20180711
  Serious: No
  Sender: FDA-Public Use
  Company Number: SE-ROCHE-2131442

PATIENT

DRUGS (1)
  1. RITUXIMAB. [Suspect]
     Active Substance: RITUXIMAB
     Indication: MULTIPLE SCLEROSIS
     Dosage: 500 MG OR 1000 MG
     Route: 042

REACTIONS (5)
  - Infusion related reaction [Unknown]
  - Arthralgia [Unknown]
  - Fatigue [Unknown]
  - Off label use [Unknown]
  - Intentional product use issue [Unknown]
